FAERS Safety Report 4421046-3 (Version None)
Quarter: 2004Q3

REPORT INFORMATION
  Report Type: 
  Country: None (occurrence: None)
  Receive Date: 20040809
  Receipt Date: 20040804
  Transmission Date: 20050211
  Serious: Yes (Life-Threatening)
  Sender: FDA-Public Use
  Company Number: PHBS2004JP10342

PATIENT
  Age: 79 Year
  Sex: Female

DRUGS (4)
  1. SANDOSTATIN LAR [Suspect]
     Indication: VIPOMA
     Dosage: 20 MG/D
     Route: 065
     Dates: start: 20040706
  2. SANDOSTATIN [Suspect]
     Indication: VIPOMA
     Dosage: 50 UG, TID
     Route: 058
     Dates: start: 20040706
  3. SANDOSTATIN [Suspect]
     Dosage: 50 UG, BID
     Route: 058
  4. TAKEPRON [Concomitant]

REACTIONS (5)
  - BLOOD CREATININE INCREASED [None]
  - BLOOD POTASSIUM INCREASED [None]
  - DIARRHOEA [None]
  - DRUG INEFFECTIVE [None]
  - RENAL FAILURE ACUTE [None]
